FAERS Safety Report 22159669 (Version 2)
Quarter: 2023Q2

REPORT INFORMATION
  Report Type: Report from Study
  Country: US (occurrence: US)
  Receive Date: 20230331
  Receipt Date: 20230418
  Transmission Date: 20230722
  Serious: No
  Sender: FDA-Public Use
  Company Number: US-BEH-2023156869

PATIENT
  Age: 36 Year
  Sex: Male
  Weight: 72.562 kg

DRUGS (3)
  1. HIZENTRA [Suspect]
     Active Substance: HUMAN IMMUNOGLOBULIN G
     Indication: Immunodeficiency common variable
     Dosage: UNK
     Route: 058
     Dates: start: 20230320, end: 20230320
  2. HIZENTRA [Suspect]
     Active Substance: HUMAN IMMUNOGLOBULIN G
     Indication: Primary immunodeficiency syndrome
     Dosage: UNK
     Route: 058
     Dates: start: 20230320, end: 20230320
  3. HIZENTRA [Suspect]
     Active Substance: HUMAN IMMUNOGLOBULIN G
     Dosage: UNK
     Route: 058
     Dates: start: 20230313, end: 20230410

REACTIONS (14)
  - Dyspnoea [Recovering/Resolving]
  - Chest discomfort [Recovering/Resolving]
  - Asthenia [Unknown]
  - Heart rate increased [Unknown]
  - Musculoskeletal discomfort [Unknown]
  - Headache [Unknown]
  - Feeling abnormal [Unknown]
  - Rash [Unknown]
  - Rash erythematous [Unknown]
  - Euphoric mood [Unknown]
  - Erythema [Unknown]
  - Dyspnoea [Unknown]
  - Throat irritation [Unknown]
  - Throat tightness [Unknown]

NARRATIVE: CASE EVENT DATE: 20230313
